FAERS Safety Report 19051248 (Version 1)
Quarter: 2021Q1

REPORT INFORMATION
  Report Type: Spontaneous
  Country: US (occurrence: US)
  Receive Date: 20210323
  Receipt Date: 20210323
  Transmission Date: 20210420
  Serious: No
  Sender: FDA-Public Use
  Company Number: None

PATIENT
  Age: 58 Year
  Sex: Male

DRUGS (1)
  1. ENTECAVIR TAB 0.5MG [Suspect]
     Active Substance: ENTECAVIR
     Indication: HEPATITIS B
     Dosage: OTHER DOSE:0.5MJ;?OTHER
     Route: 048
     Dates: start: 202001

REACTIONS (1)
  - Off label use [None]

NARRATIVE: CASE EVENT DATE: 20210322
